FAERS Safety Report 20156311 (Version 1)
Quarter: 2021Q4

REPORT INFORMATION
  Report Type: Spontaneous
  Country: US (occurrence: None)
  Receive Date: 20211206
  Receipt Date: 20211206
  Transmission Date: 20220303
  Serious: Yes (Life-Threatening, Other)
  Sender: FDA-Public Use
  Company Number: None

PATIENT
  Age: 32 Year
  Sex: Male
  Weight: 60.75 kg

DRUGS (6)
  1. LYRICA [Suspect]
     Active Substance: PREGABALIN
     Indication: Neuralgia
     Route: 048
     Dates: start: 20210913, end: 20210913
  2. LYRICA [Suspect]
     Active Substance: PREGABALIN
     Indication: Autism spectrum disorder
  3. KEPPRA [Concomitant]
     Active Substance: LEVETIRACETAM
  4. LAMICTAL [Concomitant]
     Active Substance: LAMOTRIGINE
  5. klonipin HS [Concomitant]
  6. ATIVAN [Concomitant]
     Active Substance: LORAZEPAM

REACTIONS (3)
  - Restlessness [None]
  - Tremor [None]
  - Myoclonic epilepsy [None]

NARRATIVE: CASE EVENT DATE: 20210913
